FAERS Safety Report 7552245-X (Version None)
Quarter: 2011Q2

REPORT INFORMATION
  Report Type: 
  Country: None (occurrence: None)
  Receive Date: 20110616
  Receipt Date: 20031028
  Transmission Date: 20111010
  Serious: Yes (Life-Threatening, Other)
  Sender: FDA-Public Use
  Company Number: PHHO2002CA10974

PATIENT
  Sex: Male

DRUGS (5)
  1. ALTACE [Concomitant]
     Dosage: 10 MG/DAY
  2. INSULIN [Concomitant]
  3. METOPROLOL TARTRATE [Concomitant]
     Dosage: 100 MG, QD
     Route: 048
  4. ADALAT CC [Concomitant]
     Dosage: 60 MG/DAY
  5. DIOVAN [Suspect]
     Dosage: NOT REPORTED

REACTIONS (2)
  - ATRIOVENTRICULAR BLOCK COMPLETE [None]
  - MYOCARDIAL INFARCTION [None]
